FAERS Safety Report 4949716-9 (Version None)
Quarter: 2006Q1

REPORT INFORMATION
  Report Type: 
  Country: None (occurrence: None)
  Receive Date: 20060316
  Receipt Date: 20060301
  Transmission Date: 20060701
  Serious: Yes (Hospitalization, Congenital Anomaly)
  Sender: FDA-Public Use
  Company Number: 2006-139238-NL

PATIENT
  Sex: Male

DRUGS (1)
  1. NUVARING [Suspect]
     Dates: start: 20041201, end: 20050501

REACTIONS (2)
  - HEART DISEASE CONGENITAL [None]
  - PREGNANCY WITH CONTRACEPTIVE DEVICE [None]
